FAERS Safety Report 11050853 (Version 1)
Quarter: 2015Q2

REPORT INFORMATION
  Report Type: Spontaneous
  Country: US (occurrence: US)
  Receive Date: 20150421
  Receipt Date: 20150421
  Transmission Date: 20150821
  Serious: Yes (Hospitalization, Other)
  Sender: FDA-Public Use
  Company Number: US-AMGEN-USASP2015036850

PATIENT
  Age: 94 Year
  Sex: Female

DRUGS (1)
  1. SENSIPAR [Suspect]
     Active Substance: CINACALCET HYDROCHLORIDE
     Indication: HYPERTHYROIDISM
     Dosage: UNK
     Route: 048

REACTIONS (6)
  - Dysphagia [Unknown]
  - Dementia [Unknown]
  - Treatment noncompliance [Unknown]
  - Dehydration [Unknown]
  - Hospitalisation [Recovered/Resolved]
  - Wrong technique in drug usage process [Unknown]
